FAERS Safety Report 16499574 (Version 1)
Quarter: 2019Q3

REPORT INFORMATION
  Report Type: Report from Study
  Country: JP (occurrence: JP)
  Receive Date: 20190701
  Receipt Date: 20190701
  Transmission Date: 20191004
  Serious: Yes (Other)
  Sender: FDA-Public Use
  Company Number: JP-ROCHE-2339938

PATIENT

DRUGS (6)
  1. BENDAMUSTINE [Suspect]
     Active Substance: BENDAMUSTINE
     Indication: MANTLE CELL LYMPHOMA
  2. RITUXIMAB. [Suspect]
     Active Substance: RITUXIMAB
     Indication: MANTLE CELL LYMPHOMA
  3. BENDAMUSTINE [Suspect]
     Active Substance: BENDAMUSTINE
     Indication: B-CELL LYMPHOMA
     Dosage: ON DAYS 1 AND 2
     Route: 042
  4. DEXAMETHASONE. [Suspect]
     Active Substance: DEXAMETHASONE
     Indication: B-CELL LYMPHOMA
     Route: 065
  5. DEXAMETHASONE. [Suspect]
     Active Substance: DEXAMETHASONE
     Indication: MANTLE CELL LYMPHOMA
  6. RITUXIMAB. [Suspect]
     Active Substance: RITUXIMAB
     Indication: B-CELL LYMPHOMA
     Dosage: ON DAY 1
     Route: 041

REACTIONS (21)
  - Hepatitis B reactivation [Unknown]
  - White blood cell count decreased [Unknown]
  - Neutrophil count decreased [Unknown]
  - Upper respiratory tract infection [Unknown]
  - Interstitial lung disease [Unknown]
  - Febrile neutropenia [Unknown]
  - Lymphocyte count decreased [Unknown]
  - Platelet count decreased [Unknown]
  - Rash [Unknown]
  - Glucose tolerance impaired [Unknown]
  - Pneumonia pneumococcal [Unknown]
  - Pharyngitis [Unknown]
  - Decreased appetite [Unknown]
  - Pyrexia [Unknown]
  - Amylase increased [Unknown]
  - Anaemia [Unknown]
  - Cytomegalovirus chorioretinitis [Unknown]
  - Hyperglycaemia [Unknown]
  - Skin infection [Unknown]
  - Gastric ulcer [Unknown]
  - Acute kidney injury [Unknown]
